FAERS Safety Report 7393471-2 (Version None)
Quarter: 2011Q2

REPORT INFORMATION
  Report Type: 
  Country: None (occurrence: None)
  Receive Date: 20110405
  Receipt Date: 20101019
  Transmission Date: 20111010
  Serious: Yes (Other)
  Sender: FDA-Public Use
  Company Number: US-BAYER-201011582NA

PATIENT
  Sex: Female

DRUGS (14)
  1. IBUPROFEN [Concomitant]
     Dosage: UNK
     Dates: start: 20080203
  2. IBUPROFEN [Concomitant]
     Dosage: UNK
     Dates: start: 20080329
  3. FUROSEMIDE [Concomitant]
     Dosage: UNK
     Route: 048
     Dates: start: 20080211
  4. CITALOPRAM [Concomitant]
     Indication: DEPRESSION
     Dosage: UNK
  5. CYCLOBENZAPRINE [Concomitant]
     Dosage: UNK
     Route: 048
     Dates: start: 20080329
  6. YAZ [Suspect]
     Indication: ENDOMETRIAL HYPERPLASIA
     Dosage: UNK
     Dates: start: 20040601, end: 20040901
  7. YAZ [Suspect]
     Dosage: UNK
     Dates: start: 20080201, end: 20080301
  8. YASMIN [Suspect]
     Dosage: UNK
     Dates: start: 20080201, end: 20080301
  9. YASMIN [Suspect]
     Indication: ENDOMETRIAL HYPERPLASIA
     Dosage: UNK
     Dates: start: 20040601, end: 20040901
  10. METYPRED [METHYLPREDNISOLONE] [Concomitant]
     Dosage: UNK
     Route: 048
     Dates: start: 20080219
  11. YASMIN [Suspect]
     Indication: GENITAL HAEMORRHAGE
     Dosage: UNK
     Dates: start: 20030101
  12. PROZAC [Concomitant]
     Indication: DEPRESSION
     Dosage: UNK
     Dates: start: 20060101
  13. YAZ [Suspect]
     Indication: GENITAL HAEMORRHAGE
     Dosage: UNK
     Route: 048
     Dates: start: 20030101
  14. IBUPROFEN [Concomitant]
     Dosage: UNK
     Dates: start: 20080211

REACTIONS (5)
  - CHOLECYSTITIS [None]
  - DEEP VEIN THROMBOSIS [None]
  - GALLBLADDER DISORDER [None]
  - CHOLELITHIASIS [None]
  - BILIARY COLIC [None]
